FAERS Safety Report 16616214 (Version 2)
Quarter: 2019Q3

REPORT INFORMATION
  Report Type: Report from Study
  Country: DE (occurrence: DE)
  Receive Date: 20190723
  Receipt Date: 20190909
  Transmission Date: 20191004
  Serious: Yes (Hospitalization, Other)
  Sender: FDA-Public Use
  Company Number: DE-BRISTOL-MYERS SQUIBB COMPANY-BMS-2019-069387

PATIENT
  Age: 65 Year
  Sex: Male

DRUGS (2)
  1. NIVOLUMAB [Suspect]
     Active Substance: NIVOLUMAB
     Indication: BLADDER CANCER
     Dosage: 240 MILLIGRAM
     Route: 042
     Dates: start: 20190304
  2. CONCOR [Concomitant]
     Active Substance: BISOPROLOL FUMARATE
     Indication: HYPERTENSION
     Dosage: 16 MILLIGRAM, QD
     Route: 048
     Dates: start: 2013

REACTIONS (4)
  - Acute kidney injury [Not Recovered/Not Resolved]
  - Candida infection [Unknown]
  - Septic shock [Not Recovered/Not Resolved]
  - Gastrointestinal anastomotic leak [Not Recovered/Not Resolved]

NARRATIVE: CASE EVENT DATE: 20190707
